FAERS Safety Report 20652950 (Version 2)
Quarter: 2022Q2

REPORT INFORMATION
  Report Type: Report from Study
  Country: IN (occurrence: IN)
  Receive Date: 20220330
  Receipt Date: 20220404
  Transmission Date: 20220721
  Serious: Yes (Hospitalization, Other)
  Sender: FDA-Public Use
  Company Number: IN-NOVARTISPH-NVSC2019IN061644

PATIENT
  Age: 55 Year
  Sex: Male

DRUGS (23)
  1. SIMULECT [Suspect]
     Active Substance: BASILIXIMAB
     Indication: Renal transplant
     Dosage: 20 MG, QD
     Route: 042
     Dates: start: 20191009, end: 20191012
  2. TACROLIMUS [Suspect]
     Active Substance: TACROLIMUS
     Indication: Renal transplant
     Dosage: UNK
     Route: 065
  3. TACROLIMUS [Suspect]
     Active Substance: TACROLIMUS
     Dosage: 1.0 MG, BID
     Route: 065
  4. MYCOPHENOLATE MOFETIL [Suspect]
     Active Substance: MYCOPHENOLATE MOFETIL
     Indication: Renal transplant
     Dosage: UNK
     Route: 065
  5. PREDNISOLONE [Concomitant]
     Active Substance: PREDNISOLONE
     Indication: Product used for unknown indication
     Dosage: 30 MG, QD
     Route: 065
  6. MOFILET-S [Concomitant]
     Indication: Product used for unknown indication
     Dosage: 360 MG, BID
     Route: 065
  7. TACROLIMUS [Concomitant]
     Active Substance: TACROLIMUS
     Indication: Product used for unknown indication
     Dosage: 1 MG, BID
     Route: 065
  8. SEPMAX [Concomitant]
     Indication: Product used for unknown indication
     Dosage: UNK, UNKNOWN
     Route: 048
  9. LANUM [Concomitant]
     Indication: Product used for unknown indication
     Dosage: 500 MG, QD
     Route: 065
  10. ASPIRIN\ATORVASTATIN [Concomitant]
     Active Substance: ASPIRIN\ATORVASTATIN
     Indication: Product used for unknown indication
     Dosage: 75 MG, QD
     Route: 065
  11. ACTON OR [Concomitant]
     Indication: Pain
     Dosage: UNK, PRN
     Route: 065
  12. ALUMINUM HYDROXIDE\DIMETHICONE\MAGNESIUM HYDROXIDE [Concomitant]
     Active Substance: ALUMINUM HYDROXIDE\DIMETHICONE\MAGNESIUM HYDROXIDE
     Indication: Product used for unknown indication
     Dosage: 10 ML, QD
     Route: 065
  13. FAMOTIDINE [Concomitant]
     Active Substance: FAMOTIDINE
     Indication: Product used for unknown indication
     Dosage: 20 MG, QD
     Route: 065
  14. CHLORHEXIDIN MYBACIN MOUTHWASH [Concomitant]
     Indication: Product used for unknown indication
     Dosage: UNK UNK, Q6H
     Route: 065
  15. AVIBACTAM SODIUM\CEFTAZIDIME [Concomitant]
     Active Substance: AVIBACTAM SODIUM\CEFTAZIDIME
     Indication: Product used for unknown indication
     Dosage: 2.5 MG, QD
     Route: 042
     Dates: start: 20191027
  16. PAN D [Concomitant]
     Indication: Product used for unknown indication
     Dosage: 40 MG, QD
     Route: 065
  17. LONGIFENE [Concomitant]
     Indication: Product used for unknown indication
     Dosage: 5 ML, TID
     Route: 065
  18. OVERZYME [Concomitant]
     Indication: Product used for unknown indication
     Dosage: 5 ML, TID
     Route: 065
  19. TOUJEO [Concomitant]
     Active Substance: INSULIN GLARGINE
     Indication: Product used for unknown indication
     Route: 065
  20. ACTRAPID [Concomitant]
     Active Substance: INSULIN HUMAN
     Indication: Product used for unknown indication
     Dosage: 4 UNITS
     Route: 065
  21. GANCICLOVIR [Concomitant]
     Active Substance: GANCICLOVIR
     Indication: Product used for unknown indication
     Dosage: 250 ML, BID
     Route: 065
  22. HYDROCORTISONE [Concomitant]
     Active Substance: HYDROCORTISONE
     Indication: Product used for unknown indication
     Route: 065
  23. BACTRIM DS [Concomitant]
     Active Substance: SULFAMETHOXAZOLE\TRIMETHOPRIM
     Indication: Product used for unknown indication
     Route: 065

REACTIONS (12)
  - Kidney transplant rejection [Not Recovered/Not Resolved]
  - Pulmonary oedema [Unknown]
  - Transplant rejection [Unknown]
  - Transplant dysfunction [Unknown]
  - Cytomegalovirus infection [Unknown]
  - Polyuria [Unknown]
  - Laryngopharyngitis [Unknown]
  - Toxicity to various agents [Recovering/Resolving]
  - Klebsiella test positive [Unknown]
  - Mucosal inflammation [Unknown]
  - Hiatus hernia [Unknown]
  - Helicobacter gastritis [Unknown]

NARRATIVE: CASE EVENT DATE: 20191009
